FAERS Safety Report 9258184 (Version 1)
Quarter: 2013Q2

REPORT INFORMATION
  Report Type: Spontaneous
  Country: US (occurrence: US)
  Receive Date: 20130426
  Receipt Date: 20130426
  Transmission Date: 20140414
  Serious: Yes (Other)
  Sender: FDA-Public Use
  Company Number: PHEH2013US009286

PATIENT
  Sex: Male

DRUGS (14)
  1. DIOVAN [Suspect]
     Dosage: 160 MG, BID
     Route: 048
  2. ATENOLOL SANDOZ [Suspect]
  3. LIPITOR [Suspect]
  4. PROZAC [Concomitant]
  5. OXYCONTIN [Concomitant]
     Indication: BACK PAIN
  6. ATORVASTATIN [Concomitant]
  7. METFORMIN [Concomitant]
  8. FLOMAX ^BOEHRINGER INGELHEIM^ [Concomitant]
  9. PROCARDIA [Concomitant]
  10. ASPIRIN [Concomitant]
  11. XANAX [Concomitant]
     Dosage: 1 MG, 6 TIMES DAILY
  12. MULTIVITAMINS [Concomitant]
  13. POTASSIUM [Concomitant]
  14. POLYETHYLENE GLYCOL [Concomitant]

REACTIONS (3)
  - Myocardial infarction [Unknown]
  - Depression [Unknown]
  - Muscle spasms [Unknown]
